FAERS Safety Report 9437857 (Version 2)
Quarter: 2013Q3

REPORT INFORMATION
  Report Type: Spontaneous
  Country: NO (occurrence: NO)
  Receive Date: 20130802
  Receipt Date: 20130819
  Transmission Date: 20140515
  Serious: Yes (Hospitalization)
  Sender: FDA-Public Use
  Company Number: NO-JNJFOC-20130714302

PATIENT
  Age: 27 Year
  Sex: Female

DRUGS (3)
  1. REMICADE [Suspect]
     Indication: CROHN^S DISEASE
     Dosage: EVERY 6 TO 8 WEEKS
     Route: 042
     Dates: start: 2004, end: 20130716
  2. SOLU-CORTEF [Suspect]
     Indication: ALLERGY PROPHYLAXIS
     Route: 042
     Dates: start: 20130716, end: 20130716
  3. ADRENALINE [Suspect]
     Indication: PRODUCT USED FOR UNKNOWN INDICATION
     Route: 065

REACTIONS (10)
  - Anaphylactic reaction [Recovered/Resolved]
  - Headache [Unknown]
  - Hypokalaemia [Unknown]
  - Hypotension [Recovered/Resolved]
  - Flushing [Recovered/Resolved]
  - Palpitations [Recovered/Resolved]
  - Dyspnoea [Recovered/Resolved]
  - Infusion related reaction [Recovered/Resolved]
  - Frequent bowel movements [Unknown]
  - Arthralgia [Unknown]
